FAERS Safety Report 5305061-3 (Version None)
Quarter: 2007Q2

REPORT INFORMATION
  Report Type: 
  Country: None (occurrence: None)
  Receive Date: 20070423
  Receipt Date: 20070326
  Transmission Date: 20071010
  Serious: Yes (Hospitalization, Other)
  Sender: FDA-Public Use
  Company Number: US-PFIZER INC-2006149568

PATIENT
  Sex: Female
  Weight: 61.2 kg

DRUGS (1)
  1. BEXTRA [Suspect]
     Indication: ARTHROPATHY
     Route: 048
     Dates: start: 20020703, end: 20040708

REACTIONS (3)
  - CARDIOVASCULAR DISORDER [None]
  - CEREBROVASCULAR ACCIDENT [None]
  - DEPRESSION [None]
